FAERS Safety Report 8490610-7 (Version None)
Quarter: 2012Q3

REPORT INFORMATION
  Report Type: 
  Country: None (occurrence: None)
  Receive Date: 20120705
  Receipt Date: 20120629
  Transmission Date: 20120928
  Serious: Yes (Hospitalization)
  Sender: FDA-Public Use
  Company Number: JP-ABBOTT-12P-087-0937362-00

PATIENT
  Age: 55 Year
  Sex: Male

DRUGS (4)
  1. CLARITHROMYCIN [Suspect]
     Indication: MYCOBACTERIUM KANSASII INFECTION
     Route: 048
     Dates: start: 20110310, end: 20110523
  2. RIFAMPICIN [Concomitant]
     Indication: MYCOBACTERIUM KANSASII INFECTION
     Route: 048
  3. LEVOFLOXACIN [Concomitant]
     Indication: MYCOBACTERIUM KANSASII INFECTION
     Route: 048
  4. RIFAMPICIN [Concomitant]

REACTIONS (2)
  - RENAL IMPAIRMENT [None]
  - DECREASED APPETITE [None]
